FAERS Safety Report 5866456-2 (Version None)
Quarter: 2008Q3

REPORT INFORMATION
  Report Type: 
  Country: None (occurrence: None)
  Receive Date: 20080902
  Receipt Date: 20080825
  Transmission Date: 20090109
  Serious: Yes (Other)
  Sender: FDA-Public Use
  Company Number: US-JNJFOC-20080805620

PATIENT
  Sex: Female
  Weight: 91.63 kg

DRUGS (6)
  1. REMICADE [Suspect]
     Route: 042
  2. REMICADE [Suspect]
     Indication: RHEUMATOID ARTHRITIS
     Route: 042
  3. SYNTHROID [Concomitant]
     Indication: THYROID DISORDER
  4. BYSTOLIC [Concomitant]
     Indication: BLOOD PRESSURE
  5. MOBIC [Concomitant]
     Indication: ARTHRITIS
  6. SONUMENT [Concomitant]
     Indication: BLOOD GLUCOSE

REACTIONS (5)
  - FOOT OPERATION [None]
  - INFUSION RELATED REACTION [None]
  - MUSCULOSKELETAL STIFFNESS [None]
  - NECK PAIN [None]
  - RED BLOOD CELL SEDIMENTATION RATE INCREASED [None]
